FAERS Safety Report 5950968-7 (Version None)
Quarter: 2008Q4

REPORT INFORMATION
  Report Type: 
  Country: None (occurrence: None)
  Receive Date: 20081110
  Receipt Date: 20081029
  Transmission Date: 20090506
  Serious: Yes (Hospitalization, Other)
  Sender: FDA-Public Use
  Company Number: 53850

PATIENT
  Age: 19 Year
  Sex: Male

DRUGS (1)
  1. ADRIAMYCIN PFS [Suspect]
     Indication: SYNOVIAL SARCOMA

REACTIONS (4)
  - HYPERPLASIA [None]
  - PNEUMOTHORAX [None]
  - REBOUND EFFECT [None]
  - THYMUS DISORDER [None]
